FAERS Safety Report 5443227-2 (Version None)
Quarter: 2007Q3

REPORT INFORMATION
  Report Type: 
  Country: None (occurrence: None)
  Receive Date: 20070905
  Receipt Date: 20070829
  Transmission Date: 20080115
  Serious: Yes (Other)
  Sender: FDA-Public Use
  Company Number: US-AVENTIS-200714293US

PATIENT
  Sex: Female
  Weight: 46.81 kg

DRUGS (12)
  1. LANTUS [Suspect]
     Dates: start: 20070401, end: 20070101
  2. LANTUS [Suspect]
     Dates: start: 20070101, end: 20070101
  3. LANTUS [Suspect]
     Dosage: DOSE: UNK
     Dates: start: 20070101, end: 20070101
  4. LANTUS [Suspect]
     Dates: start: 20070601, end: 20070601
  5. LANTUS [Suspect]
     Dates: start: 20070601, end: 20070101
  6. LANTUS [Suspect]
     Dosage: DOSE: 10-22 U AT 5:00-6:00 AM
     Dates: start: 20070101
  7. OPTICLIK (INSULIN INJECTION PEN) [Suspect]
     Dates: start: 20070401, end: 20070101
  8. OPTICLIK (INSULIN INJECTION PEN) [Suspect]
     Dates: start: 20070101
  9. NOVOLOG [Concomitant]
     Dosage: DOSE: ^FIXED DOSE^ NOS
     Dates: end: 20070101
  10. NOVOLOG [Concomitant]
     Dosage: DOSE: SLIDING SCALE NOS
     Dates: start: 20070601
  11. VYTORIN [Concomitant]
     Dosage: DOSE: UNK
  12. ASPIRIN [Concomitant]
     Dosage: DOSE: ^LOW DOSE^ NOS

REACTIONS (4)
  - BLOOD GLUCOSE FLUCTUATION [None]
  - HYPERGLYCAEMIA [None]
  - HYPOGLYCAEMIA [None]
  - LOSS OF CONSCIOUSNESS [None]
